FAERS Safety Report 4868027-3 (Version None)
Quarter: 2005Q4

REPORT INFORMATION
  Report Type: 
  Country: None (occurrence: None)
  Receive Date: 20051229
  Receipt Date: 20051215
  Transmission Date: 20060501
  Serious: Yes (Life-Threatening)
  Sender: FDA-Public Use
  Company Number: NL-BRISTOL-MYERS SQUIBB COMPANY-13230941

PATIENT
  Age: 62 Year
  Sex: Male

DRUGS (4)
  1. ENDOXAN-ASTA [Suspect]
     Indication: CHEMOTHERAPY
     Dates: start: 19990101
  2. VINCRISTINE SULFATE [Suspect]
     Indication: CHEMOTHERAPY
     Dates: start: 19990101
  3. NATULAN [Suspect]
     Indication: CHEMOTHERAPY
     Dates: start: 19990101
  4. PREDNISONE 50MG TAB [Suspect]
     Indication: CHEMOTHERAPY
     Dates: start: 19990101

REACTIONS (1)
  - CARDIAC FAILURE [None]
